FAERS Safety Report 21154997 (Version 2)
Quarter: 2022Q3

REPORT INFORMATION
  Report Type: Spontaneous
  Country: PT (occurrence: PT)
  Receive Date: 20220801
  Receipt Date: 20220916
  Transmission Date: 20221026
  Serious: Yes (Other)
  Sender: FDA-Public Use
  Company Number: None

PATIENT
  Age: 66 Year
  Sex: Male

DRUGS (4)
  1. SORAFENIB [Suspect]
     Active Substance: SORAFENIB
     Indication: Hepatocellular carcinoma
     Dosage: 600 MG/DAY - THE 600 MG IS DIVIDED INTO 400 MG IN THE MORNING AND 200 MG IN THE EVENING , DURATION :
     Route: 065
     Dates: start: 20220120, end: 20220713
  2. EVEROLIMUS [Concomitant]
     Active Substance: EVEROLIMUS
     Indication: Product used for unknown indication
  3. OMEPRAZOLE [Concomitant]
     Active Substance: OMEPRAZOLE
     Indication: Product used for unknown indication
  4. ASPIRIN [Concomitant]
     Active Substance: ASPIRIN
     Indication: Product used for unknown indication
     Dosage: 100 MILLIGRAM DAILY; 100MG 1XDAY^ ,ACETYLSALICYLIC ACID , FORM STRENGTH  100 MG

REACTIONS (6)
  - Product substitution issue [Unknown]
  - Weight decreased [Unknown]
  - Dysphonia [Unknown]
  - Ageusia [Unknown]
  - Dermatitis acneiform [Unknown]
  - Diarrhoea [Unknown]

NARRATIVE: CASE EVENT DATE: 20220120
